FAERS Safety Report 4948308-5 (Version None)
Quarter: 2006Q1

REPORT INFORMATION
  Report Type: 
  Country: None (occurrence: None)
  Receive Date: 20060320
  Receipt Date: 20060125
  Transmission Date: 20060701
  Serious: Yes (Hospitalization)
  Sender: FDA-Public Use
  Company Number: AT-ROCHE-433466

PATIENT
  Age: 34 Year
  Sex: Male

DRUGS (10)
  1. PEG-INTERFERON ALFA 2A (RO 25-8310) [Suspect]
     Dosage: DATE OF LAST DOSE PRIOR TO SAE WAS 28 DEC 2005
     Route: 058
     Dates: start: 20050914, end: 20060104
  2. PEG-INTERFERON ALFA 2A (RO 25-8310) [Suspect]
     Route: 058
     Dates: start: 20060118
  3. RIBAVIRIN [Suspect]
     Route: 048
  4. ALUMINUM HYDROXIDE GEL [Concomitant]
  5. PANCREATIN TRIPLE STRENGTH CAP [Concomitant]
  6. CALCITRIOL [Concomitant]
  7. SEVELAMER HYDROCHLORIDE [Concomitant]
  8. ATENOLOL [Concomitant]
  9. LOW MOLECULAR WEIGHT HEPARINS [Concomitant]
  10. EPOGEN [Concomitant]

REACTIONS (1)
  - TRANSPLANT REJECTION [None]
